FAERS Safety Report 6973793-7 (Version None)
Quarter: 2010Q3

REPORT INFORMATION
  Report Type: 
  Country: None (occurrence: None)
  Receive Date: 20100909
  Receipt Date: 20100902
  Transmission Date: 20110219
  Serious: Yes (Other)
  Sender: FDA-Public Use
  Company Number: A0879238A

PATIENT
  Sex: Male

DRUGS (1)
  1. WELLBUTRIN [Suspect]
     Indication: PRODUCT USED FOR UNKNOWN INDICATION
     Dosage: 37.5MG UNKNOWN
     Route: 065
     Dates: start: 20090101

REACTIONS (21)
  - ADVERSE DRUG REACTION [None]
  - AGGRESSION [None]
  - ANGER [None]
  - BONE PAIN [None]
  - BRAIN OEDEMA [None]
  - CONVULSION [None]
  - DRUG ADMINISTRATION ERROR [None]
  - DYSPHAGIA [None]
  - HALLUCINATION [None]
  - HOMICIDAL IDEATION [None]
  - ILL-DEFINED DISORDER [None]
  - INJURY [None]
  - JOINT RANGE OF MOTION DECREASED [None]
  - LARYNGEAL DISORDER [None]
  - MUSCULAR WEAKNESS [None]
  - NECK INJURY [None]
  - OCCIPITAL NEURALGIA [None]
  - PAIN [None]
  - PHARYNGEAL DISORDER [None]
  - PHARYNGEAL INJURY [None]
  - VOMITING [None]
